FAERS Safety Report 19782472 (Version 1)
Quarter: 2021Q3

REPORT INFORMATION
  Report Type: Spontaneous
  Country: US (occurrence: US)
  Receive Date: 20210902
  Receipt Date: 20210902
  Transmission Date: 20211014
  Serious: No
  Sender: FDA-Public Use
  Company Number: US-ENDO PHARMACEUTICALS INC-2020-007521

PATIENT
  Sex: Female

DRUGS (6)
  1. TESSALON [Concomitant]
     Active Substance: BENZONATATE
     Indication: COUGH
  2. TESSALON [Concomitant]
     Active Substance: BENZONATATE
     Indication: LUNG DISORDER
  3. PREDNISONE. [Suspect]
     Active Substance: PREDNISONE
     Indication: COUGH
  4. STEROIDS [Concomitant]
     Active Substance: UNSPECIFIED INGREDIENT
     Indication: COUGH
  5. PREDNISONE. [Suspect]
     Active Substance: PREDNISONE
     Indication: LUNG DISORDER
     Dosage: UNK UNKNOWN, UNKNOWN
     Route: 065
  6. STEROIDS [Concomitant]
     Active Substance: UNSPECIFIED INGREDIENT
     Indication: LUNG DISORDER

REACTIONS (1)
  - Drug ineffective [Unknown]
